FAERS Safety Report 10501320 (Version 1)
Quarter: 2014Q4

REPORT INFORMATION
  Report Type: Spontaneous
  Country: US (occurrence: US)
  Receive Date: 20141007
  Receipt Date: 20141007
  Transmission Date: 20150528
  Serious: No
  Sender: FDA-Public Use
  Company Number: US-BAYER-2014-132121

PATIENT
  Sex: Male

DRUGS (1)
  1. BETAPACE [Suspect]
     Active Substance: SOTALOL HYDROCHLORIDE
     Indication: ARRHYTHMIA
     Dosage: ON BETAPACE FOR OVER 20 YEARS
     Dates: start: 1992

REACTIONS (1)
  - Arrhythmia [None]
